FAERS Safety Report 6882711-1 (Version None)
Quarter: 2010Q3

REPORT INFORMATION
  Report Type: 
  Country: None (occurrence: None)
  Receive Date: 20100729
  Receipt Date: 20100723
  Transmission Date: 20110219
  Serious: Yes (Other)
  Sender: FDA-Public Use
  Company Number: FR-BAXTER-2010BH019808

PATIENT

DRUGS (6)
  1. IFOSFAMIDE [Suspect]
     Indication: THYMOMA
     Route: 065
  2. IFOSFAMIDE [Suspect]
     Indication: THYMIC CANCER METASTATIC
     Route: 065
  3. ETOPOSIDE GENERIC [Suspect]
     Indication: THYMOMA
     Route: 065
  4. ETOPOSIDE GENERIC [Suspect]
     Indication: THYMIC CANCER METASTATIC
     Route: 065
  5. CISPLATIN [Suspect]
     Indication: THYMOMA
     Route: 065
  6. CISPLATIN [Suspect]
     Indication: THYMIC CANCER METASTATIC
     Route: 065

REACTIONS (1)
  - PULMONARY TOXICITY [None]
